FAERS Safety Report 8347549-7 (Version None)
Quarter: 2012Q2

REPORT INFORMATION
  Report Type: 
  Country: None (occurrence: None)
  Receive Date: 20120509
  Receipt Date: 20120501
  Transmission Date: 20120825
  Serious: Yes (Other)
  Sender: FDA-Public Use
  Company Number: CA-ROCHE-1005962

PATIENT
  Sex: Female
  Weight: 96.702 kg

DRUGS (31)
  1. NASONEX [Concomitant]
  2. TYLENOL #3 (UNITED STATES) [Concomitant]
  3. ATROVENT [Concomitant]
     Dosage: 20MCG 2-4 PUFFS 4 PER DAY
  4. ESCITALOPRAM [Concomitant]
  5. ACTEMRA [Suspect]
     Indication: RHEUMATOID ARTHRITIS
     Route: 042
     Dates: start: 20110628
  6. DOMPERIDONE [Concomitant]
  7. CRESTOR [Concomitant]
  8. DILTAHEXAL [Concomitant]
  9. RATIO-LENOLTEC PRODUCT NOS [Concomitant]
     Dosage: 1-2 EVERY 4 HOUR AS NEEDED
  10. GLICLAZIDE [Concomitant]
  11. ESCITALOPRAM [Concomitant]
  12. PANTOPRAZOLE SODIUM [Concomitant]
  13. RAMIPRIL [Concomitant]
  14. WARFARIN SODIUM [Concomitant]
  15. ACTEMRA [Suspect]
     Route: 042
     Dates: start: 20110727
  16. ACTEMRA [Suspect]
     Dates: start: 20111116
  17. FENTANYL CITRATE [Concomitant]
     Dosage: 100MCG/H2 PATCHES/72 HOURS
  18. VENTOLIN [Concomitant]
  19. ADVAIR DISKUS 100/50 [Concomitant]
     Dosage: 500/50MCG 1PUFF/2 DAY
  20. MORPHINE SULFATE [Concomitant]
     Dosage: 1-2/DAY AS NEEDED
  21. METFORMIN HCL [Concomitant]
  22. PRAMIPEXOLE DIHYDROCHLORIDE [Concomitant]
  23. RISEDRONATE SODIUM [Concomitant]
  24. ACTEMRA [Suspect]
     Dates: start: 20120501
  25. SINGULAIR [Concomitant]
  26. GAVISCON (UNK INGREDIENTS) [Concomitant]
  27. ALBUTEROL SULFATE AUTOHALER [Concomitant]
  28. DOCUSATE SODIUM [Concomitant]
  29. BIMATOPROST [Concomitant]
     Dosage: 0.01% 1/EYE/DAY
  30. DIPHENHYDRAMINE HYDROCHLORIDE/ZINC ACETATE [Concomitant]
     Dosage: 1/2 DOSE 15 MINUTES PRIOR TO INFUSION
  31. GRAVEL ROOT [Concomitant]
     Dosage: AS NEEDED

REACTIONS (5)
  - OEDEMA PERIPHERAL [None]
  - PAIN IN EXTREMITY [None]
  - HAND FRACTURE [None]
  - PNEUMOTHORAX [None]
  - WRIST FRACTURE [None]
